FAERS Safety Report 8540989-2 (Version None)
Quarter: 2012Q3

REPORT INFORMATION
  Report Type: 
  Country: None (occurrence: None)
  Receive Date: 20120726
  Receipt Date: 20110810
  Transmission Date: 20120928
  Serious: No
  Sender: FDA-Public Use
  Company Number: US-ASTRAZENECA-2011SE48132

PATIENT
  Age: 37 Year
  Sex: Female

DRUGS (1)
  1. SEROQUEL XR [Suspect]
     Route: 048

REACTIONS (5)
  - HEADACHE [None]
  - NAUSEA [None]
  - WRONG DRUG ADMINISTERED [None]
  - DIZZINESS [None]
  - INSOMNIA [None]
